FAERS Safety Report 14777653 (Version 2)
Quarter: 2018Q4

REPORT INFORMATION
  Report Type: Spontaneous
  Country: DE (occurrence: DE)
  Receive Date: 20180419
  Receipt Date: 20181206
  Transmission Date: 20190204
  Serious: Yes (Other)
  Sender: FDA-Public Use
  Company Number: DE-ACCORD-065730

PATIENT
  Age: 78 Year
  Sex: Male

DRUGS (11)
  1. ACETYLSALICYLIC ACID [Concomitant]
     Active Substance: ASPIRIN
     Dosage: 100 MG, QD
     Route: 048
  2. BICANORM [Concomitant]
     Active Substance: SODIUM BICARBONATE
     Dosage: 2520 MG, QD
     Route: 048
  3. DREISAVIT N [Concomitant]
     Dosage: 1 TAB, QD
     Route: 048
  4. ACETYLCYSTEINE. [Concomitant]
     Active Substance: ACETYLCYSTEINE
     Dosage: 600 MG, QD
     Route: 048
     Dates: start: 20170425, end: 20170507
  5. ERYPO [Concomitant]
     Dosage: 10000 IU, QD
     Route: 058
  6. ACTRAPID [Concomitant]
     Active Substance: INSULIN HUMAN
     Dosage: 40 IU, QD,/00646001/
     Route: 048
  7. TORASEMIDE [Concomitant]
     Active Substance: TORSEMIDE
     Dosage: 20 MG, QD
     Route: 048
  8. LORAZEPAM. [Concomitant]
     Active Substance: LORAZEPAM
     Dosage: 1 MG, QD
     Route: 048
     Dates: start: 20161221
  9. FERRLECIT [Concomitant]
     Active Substance: SODIUM FERRIC GLUCONATE COMPLEX
     Dosage: 40 MG, QD
     Route: 042
  10. ARIPIPRAZOLE. [Suspect]
     Active Substance: ARIPIPRAZOLE
     Indication: PRODUCT USED FOR UNKNOWN INDICATION
     Dosage: 10 MG, QD, ALSO RECEIVED 5 MG FROM 13-DEC-2016 TO 19-DEC-2016 (7 DAYS)
     Route: 048
     Dates: start: 20161220, end: 20170606
  11. SIMVASTATIN. [Concomitant]
     Active Substance: SIMVASTATIN
     Dosage: 20 MG, QD
     Route: 048

REACTIONS (2)
  - Atrioventricular block [Recovered/Resolved]
  - Prescribed underdose [Unknown]

NARRATIVE: CASE EVENT DATE: 20170425
